FAERS Safety Report 8451303-5 (Version None)
Quarter: 2012Q2

REPORT INFORMATION
  Report Type: 
  Country: None (occurrence: None)
  Receive Date: 20120620
  Receipt Date: 20120320
  Transmission Date: 20120825
  Serious: No
  Sender: FDA-Public Use
  Company Number: US-VERTEX PHARMACEUTICALS INC.-AE-2012-002498

PATIENT
  Sex: Male
  Weight: 92.616 kg

DRUGS (7)
  1. RIBATRON [Concomitant]
     Indication: HEPATITIS C
     Route: 048
     Dates: start: 20120103
  2. PEGASYS [Concomitant]
     Indication: HEPATITIS C
     Route: 058
     Dates: start: 20120103
  3. DILAUDID [Concomitant]
     Indication: ARTHRALGIA
  4. ALBUTEROL [Concomitant]
     Indication: ASTHMA
  5. INCIVEK [Suspect]
     Indication: HEPATITIS C
     Route: 048
     Dates: start: 20120103
  6. PLAQUENIL [Concomitant]
     Indication: ARTHRALGIA
  7. ADVAIR DISKUS 100/50 [Concomitant]
     Indication: ASTHMA

REACTIONS (3)
  - FATIGUE [None]
  - RASH ERYTHEMATOUS [None]
  - SKIN LESION [None]
